FAERS Safety Report 22652072 (Version 1)
Quarter: 2023Q2

REPORT INFORMATION
  Report Type: Spontaneous
  Country: US (occurrence: US)
  Receive Date: 20230628
  Receipt Date: 20230628
  Transmission Date: 20230721
  Serious: No
  Sender: FDA-Public Use
  Company Number: US-009507513-2306USA006462

PATIENT
  Age: 38 Year
  Sex: Male

DRUGS (2)
  1. TEMODAR [Suspect]
     Active Substance: TEMOZOLOMIDE
     Indication: Astroblastoma
     Dosage: 75 MILLIGRAM/SQ. METER
  2. TEMODAR [Suspect]
     Active Substance: TEMOZOLOMIDE
     Dosage: 150-200 MG/M2, 5 DAYS-ON/23 DAYSS-OFF

REACTIONS (1)
  - Product use in unapproved indication [Unknown]
